FAERS Safety Report 13054225 (Version 1)
Quarter: 2016Q4

REPORT INFORMATION
  Report Type: Spontaneous
  Country: FR (occurrence: FR)
  Receive Date: 20161222
  Receipt Date: 20161222
  Transmission Date: 20170207
  Serious: Yes (Life-Threatening, Hospitalization)
  Sender: FDA-Public Use
  Company Number: FR-ELI_LILLY_AND_COMPANY-FR201612004582

PATIENT
  Age: 60 Year
  Sex: Male

DRUGS (7)
  1. ALIMTA [Suspect]
     Active Substance: PEMETREXED DISODIUM
     Indication: LUNG ADENOCARCINOMA
     Dosage: 1000 MG, CYCLICAL
     Route: 042
     Dates: end: 20160928
  2. CISPLATINE [Suspect]
     Active Substance: CISPLATIN
     Indication: LUNG ADENOCARCINOMA
     Dosage: 150 MG, UNK
     Route: 042
     Dates: start: 20160928, end: 20160928
  3. ONDANSETRON ACCORD [Concomitant]
     Active Substance: ONDANSETRON
     Indication: PROPHYLAXIS OF NAUSEA AND VOMITING
     Dosage: 8 MG, UNKNOWN
     Route: 042
     Dates: start: 20160928, end: 20160928
  4. ALIMTA [Suspect]
     Active Substance: PEMETREXED DISODIUM
     Dosage: 1000 MG, CYCLICAL
     Route: 042
     Dates: end: 20160928
  5. PLITICAN [Concomitant]
     Active Substance: ALIZAPRIDE HYDROCHLORIDE
     Indication: PROPHYLAXIS OF NAUSEA AND VOMITING
     Dosage: 100 MG, UNKNOWN
     Route: 042
     Dates: start: 20160928, end: 20160928
  6. ALIMTA [Suspect]
     Active Substance: PEMETREXED DISODIUM
     Dosage: 1000 MG, CYCLICAL
     Route: 042
     Dates: end: 20160928
  7. METHYLPREDNISOLONE MYLAN           /00049602/ [Concomitant]
     Active Substance: METHYLPREDNISOLONE SODIUM SUCCINATE
     Indication: PROPHYLAXIS OF NAUSEA AND VOMITING
     Dosage: 120 MG, UNKNOWN
     Route: 042
     Dates: start: 20160928, end: 20160928

REACTIONS (1)
  - Anaphylactic shock [Recovered/Resolved]

NARRATIVE: CASE EVENT DATE: 20160928
